FAERS Safety Report 5157673-8 (Version None)
Quarter: 2006Q4

REPORT INFORMATION
  Report Type: 
  Country: None (occurrence: None)
  Receive Date: 20061127
  Receipt Date: 20051012
  Transmission Date: 20070319
  Serious: Yes (Hospitalization)
  Sender: FDA-Public Use
  Company Number: US-ROCHE-421081

PATIENT
  Age: 73 Year
  Sex: Female
  Weight: 60.8 kg

DRUGS (5)
  1. CAPECITABINE [Suspect]
     Route: 048
     Dates: start: 20050825
  2. GEMCITABINE HCL [Suspect]
     Route: 042
  3. LOTREL [Concomitant]
     Indication: HYPERTENSION
  4. PAROXETINE HCL [Concomitant]
     Indication: DEPRESSION
  5. ATENOLOL [Concomitant]
     Indication: HYPERTENSION

REACTIONS (11)
  - ALANINE AMINOTRANSFERASE INCREASED [None]
  - ASPARTATE AMINOTRANSFERASE INCREASED [None]
  - BLOOD CREATININE INCREASED [None]
  - BLOOD LACTATE DEHYDROGENASE INCREASED [None]
  - BRONCHOSPASM [None]
  - DYSPNOEA [None]
  - HAEMOGLOBIN DECREASED [None]
  - HYPERVENTILATION [None]
  - PLEURAL EFFUSION [None]
  - PYREXIA [None]
  - WHITE BLOOD CELL COUNT INCREASED [None]
